FAERS Safety Report 12535517 (Version 1)
Quarter: 2016Q3

REPORT INFORMATION
  Report Type: Spontaneous
  Country: JP (occurrence: JP)
  Receive Date: 20160707
  Receipt Date: 20160707
  Transmission Date: 20161109
  Serious: Yes (Other)
  Sender: FDA-Public Use
  Company Number: JP-SUN PHARMACEUTICAL INDUSTRIES LTD-2016RR-119031

PATIENT
  Sex: Male

DRUGS (1)
  1. IMATINIB [Suspect]
     Active Substance: IMATINIB
     Indication: CHRONIC MYELOID LEUKAEMIA
     Dosage: UNK
     Route: 065

REACTIONS (6)
  - Anaemia [Unknown]
  - Gastric haemorrhage [Unknown]
  - Iron deficiency anaemia [Unknown]
  - Gastric mucosal lesion [Unknown]
  - Gastric antral vascular ectasia [Unknown]
  - Hyperuricaemia [Unknown]
